FAERS Safety Report 17075899 (Version 1)
Quarter: 2019Q4

REPORT INFORMATION
  Report Type: Spontaneous
  Country: US (occurrence: US)
  Receive Date: 20191029
  Receipt Date: 20191029
  Transmission Date: 20200122
  Serious: No
  Sender: FDA-Public Use
  Company Number: None

PATIENT
  Age: 58 Year
  Sex: Female

DRUGS (10)
  1. IBANDRONATE [Concomitant]
     Active Substance: IBANDRONATE SODIUM
  2. PREDNISONE. [Concomitant]
     Active Substance: PREDNISONE
  3. PROPRANOLOL [Concomitant]
     Active Substance: PROPRANOLOL HYDROCHLORIDE
  4. ESTALOZAM [Concomitant]
  5. BUPROPION. [Concomitant]
     Active Substance: BUPROPION
  6. OPTIMNAL-D [Concomitant]
  7. SYNTHROID [Concomitant]
     Active Substance: LEVOTHYROXINE SODIUM
  8. HYDROXYZ [Concomitant]
     Active Substance: HYDROXYZINE HYDROCHLORIDE
  9. OCALIVA [Suspect]
     Active Substance: OBETICHOLIC ACID
     Indication: PRIMARY BILIARY CHOLANGITIS
     Route: 048
     Dates: start: 20170315
  10. SPIRONOLACT [Concomitant]
     Active Substance: SPIRONOLACTONE

REACTIONS (3)
  - Dry mouth [None]
  - Pruritus [None]
  - Dry eye [None]
